FAERS Safety Report 5345080-4 (Version None)
Quarter: 2007Q2

REPORT INFORMATION
  Report Type: 
  Country: None (occurrence: None)
  Receive Date: 20070601
  Receipt Date: 20070516
  Transmission Date: 20071010
  Serious: Yes (Disabling)
  Sender: FDA-Public Use
  Company Number: BEN-2007-012

PATIENT
  Sex: Female

DRUGS (1)
  1. DICYCLOMINE [Suspect]
     Dosage: INTRAVENOUS; 1 ADMINISTRATION
     Route: 042
     Dates: start: 20000101

REACTIONS (3)
  - ADVERSE EVENT [None]
  - DRUG ADMINISTRATION ERROR [None]
  - THROMBOPHLEBITIS [None]
